FAERS Safety Report 20889499 (Version 2)
Quarter: 2022Q3

REPORT INFORMATION
  Report Type: Spontaneous
  Country: US (occurrence: US)
  Receive Date: 20220530
  Receipt Date: 20220708
  Transmission Date: 20221026
  Serious: Yes (Hospitalization, Other)
  Sender: FDA-Public Use
  Company Number: US-NOVOPROD-921523

PATIENT
  Age: 76 Year
  Sex: Female

DRUGS (1)
  1. FIASP [Suspect]
     Active Substance: INSULIN ASPART
     Indication: Product used for unknown indication
     Dosage: UNK (INSULIN PUMP)
     Route: 058
     Dates: start: 2021

REACTIONS (4)
  - Pneumonia [Recovered/Resolved]
  - Hip fracture [Recovered/Resolved]
  - Blood glucose increased [Recovered/Resolved]
  - Liquid product physical issue [Unknown]

NARRATIVE: CASE EVENT DATE: 20220325
